FAERS Safety Report 8852109 (Version 2)
Quarter: 2013Q2

REPORT INFORMATION
  Report Type: Spontaneous
  Country: US (occurrence: None)
  Receive Date: 20120426
  Receipt Date: 20120703
  Transmission Date: 20140414
  Serious: No
  Sender: FDA-Public Use
  Company Number: PHEH2012US001333

PATIENT
  Age: 51 Year
  Sex: Female

DRUGS (10)
  1. GILENYA [Suspect]
     Indication: RELAPSING-REMITTING MULTIPLE SCLEROSIS
     Route: 048
     Dates: start: 20120110
  2. SYNTHROID (LEVOTHYROXINE SODIUM) [Concomitant]
  3. VITAMIN B12 (CYANOCOBALAMIN) [Concomitant]
  4. VITAMIN D (ERGOCALCIFEROL) [Concomitant]
  5. HYDROCHLOROTHIAZIDE [Concomitant]
  6. LISINOPRIL (LISINOPRIL) [Concomitant]
  7. LEVOTHROID (LEVOTHYROXINE SODIUM) [Concomitant]
  8. VITAMINS (ASCORBIC ACID, ERGOCALCIFEROL,NICOTINAMIDE, RETINOL, RIBOFLAVIN, THIAMINE HYDROCHLORIDE) [Concomitant]
  9. COPAXONE (GLATIRAMER ACETATE) [Concomitant]
  10. AVONEX (INTERFERON BETA-1A) [Concomitant]

REACTIONS (4)
  - Vomiting [None]
  - Fall [None]
  - Asthenia [None]
  - Drug ineffective [None]
